FAERS Safety Report 9770875 (Version 3)
Quarter: 2014Q1

REPORT INFORMATION
  Report Type: Spontaneous
  Country: US (occurrence: US)
  Receive Date: 20131218
  Receipt Date: 20140122
  Transmission Date: 20141002
  Serious: No
  Sender: FDA-Public Use
  Company Number: US-BIOGENIDEC-2013BI120030

PATIENT
  Age: 42 Year
  Sex: Female

DRUGS (13)
  1. TECFIDERA [Suspect]
     Indication: MULTIPLE SCLEROSIS
     Route: 048
     Dates: start: 20131130
  2. TECFIDERA [Suspect]
     Indication: MULTIPLE SCLEROSIS
     Route: 048
     Dates: start: 201312
  3. LISINOPRIL [Concomitant]
  4. CLARITIN [Concomitant]
  5. PROVIGIL [Concomitant]
  6. VITAMIN D3 [Concomitant]
  7. NUEDEXTA [Concomitant]
  8. ZOCOR [Concomitant]
  9. LYSINE [Concomitant]
  10. COQ10 [Concomitant]
  11. FISH OIL [Concomitant]
  12. VITAMIN B COMPLEX [Concomitant]
  13. VITAMIN C [Concomitant]

REACTIONS (3)
  - Underdose [Unknown]
  - Flushing [Recovered/Resolved]
  - Rash [Unknown]
